FAERS Safety Report 11891478 (Version 1)
Quarter: 2016Q1

REPORT INFORMATION
  Report Type: Spontaneous
  Country: US (occurrence: None)
  Receive Date: 20160105
  Receipt Date: 20160105
  Transmission Date: 20160526
  Serious: No
  Sender: FDA-Public Use
  Company Number: None

PATIENT
  Sex: Male
  Weight: 68.04 kg

DRUGS (7)
  1. DULOXETINE. [Suspect]
     Active Substance: DULOXETINE
     Indication: DEPRESSION
     Dosage: BY MOUTH
     Route: 048
     Dates: start: 20150210
  2. DULOXETINE. [Suspect]
     Active Substance: DULOXETINE
     Indication: ANXIETY
     Dosage: BY MOUTH
     Route: 048
     Dates: start: 20150210
  3. VITAMIN C [Concomitant]
     Active Substance: ASCORBIC ACID
  4. DULOXETINE. [Suspect]
     Active Substance: DULOXETINE
     Indication: MUSCULOSKELETAL PAIN
     Dosage: BY MOUTH
     Route: 048
     Dates: start: 20150210
  5. DULOXETINE. [Suspect]
     Active Substance: DULOXETINE
     Indication: PAIN
     Dosage: BY MOUTH
     Route: 048
     Dates: start: 20150210
  6. HIGH FIBER BAR [Concomitant]
  7. DULOXETINE. [Suspect]
     Active Substance: DULOXETINE
     Indication: FIBROMYALGIA
     Dosage: BY MOUTH
     Route: 048
     Dates: start: 20150210

REACTIONS (1)
  - Skin discolouration [None]

NARRATIVE: CASE EVENT DATE: 20150210
